FAERS Safety Report 6983756-3 (Version None)
Quarter: 2010Q3

REPORT INFORMATION
  Report Type: 
  Country: None (occurrence: None)
  Receive Date: 20100914
  Receipt Date: 20081210
  Transmission Date: 20110219
  Serious: No
  Sender: FDA-Public Use
  Company Number: US-WYE-H07188408

PATIENT
  Sex: Female
  Weight: 54.03 kg

DRUGS (4)
  1. ADVIL LIQUI-GELS [Suspect]
     Indication: PAIN
     Dosage: 1 TABLET ONCE AT NIGHT
     Route: 048
     Dates: start: 20081205, end: 20081206
  2. LYRICA [Concomitant]
  3. LIDOCAINE [Concomitant]
  4. OXYCONTIN [Concomitant]

REACTIONS (2)
  - DRY MOUTH [None]
  - SWELLING [None]
